FAERS Safety Report 20609628 (Version 3)
Quarter: 2023Q1

REPORT INFORMATION
  Report Type: Spontaneous
  Country: US (occurrence: None)
  Receive Date: 20220318
  Receipt Date: 20230324
  Transmission Date: 20230417
  Serious: No
  Sender: FDA-Public Use
  Company Number: 2022A092119

PATIENT
  Age: 36 Year
  Sex: Female

DRUGS (3)
  1. FASENRA [Suspect]
     Active Substance: BENRALIZUMAB
     Indication: Asthma
     Route: 058
  2. FASENRA [Concomitant]
     Active Substance: BENRALIZUMAB
  3. XHANCE [Concomitant]
     Active Substance: FLUTICASONE PROPIONATE
     Indication: Nasal polyps

REACTIONS (3)
  - Exposure during pregnancy [Unknown]
  - Sinus congestion [Unknown]
  - Drug ineffective [Unknown]
